FAERS Safety Report 5588023-0 (Version None)
Quarter: 2008Q1

REPORT INFORMATION
  Report Type: 
  Country: None (occurrence: None)
  Receive Date: 20080111
  Receipt Date: 20080107
  Transmission Date: 20080703
  Serious: Yes (Other)
  Sender: FDA-Public Use
  Company Number: PHNU2008DE00443

PATIENT
  Sex: Female

DRUGS (6)
  1. DIOVAN [Suspect]
     Dosage: 80 MG/D
     Route: 048
     Dates: end: 20070101
  2. DIOVAN [Suspect]
     Dosage: 160 MG/D
     Route: 048
     Dates: start: 20070101, end: 20070101
  3. DIOVAN [Suspect]
     Dosage: 80 MG/D
     Dates: start: 20070101
  4. TERBINAFINE HCL [Suspect]
  5. ARIMIDEX [Concomitant]
  6. L-THYROXINE [Concomitant]

REACTIONS (3)
  - ARRHYTHMIA [None]
  - DRUG INTERACTION [None]
  - TACHYCARDIA [None]
